FAERS Safety Report 8101582-9 (Version None)
Quarter: 2012Q1

REPORT INFORMATION
  Report Type: 
  Country: None (occurrence: None)
  Receive Date: 20120129
  Receipt Date: 20110916
  Transmission Date: 20120608
  Serious: No
  Sender: FDA-Public Use
  Company Number: US-ABBOTT-11P-163-0855890-00

PATIENT
  Sex: Male
  Weight: 83.99 kg

DRUGS (3)
  1. HUMIRA [Suspect]
     Indication: PSORIASIS
     Dates: start: 20110301, end: 20110701
  2. HUMIRA [Suspect]
     Dates: start: 20110701, end: 20110909
  3. UNKNOWN THYROID MEDICATION [Concomitant]
     Indication: HYPOTHYROIDISM

REACTIONS (4)
  - PSORIASIS [None]
  - NASAL CONGESTION [None]
  - HYPERSENSITIVITY [None]
  - COUGH [None]
